FAERS Safety Report 9204431 (Version 2)
Quarter: 2013Q2

REPORT INFORMATION
  Report Type: Spontaneous
  Country: ES (occurrence: ES)
  Receive Date: 20130402
  Receipt Date: 20130424
  Transmission Date: 20140414
  Serious: Yes (Other)
  Sender: FDA-Public Use
  Company Number: ES-ABBOTT-13X-144-1071226-00

PATIENT
  Age: 17 Year
  Sex: Male

DRUGS (2)
  1. DEPAKINE CHRONO [Suspect]
     Indication: LOSS OF CONSCIOUSNESS
     Dosage: EXTENDED RELEASE
     Route: 048
     Dates: start: 20110912
  2. DEPAKINE CHRONO [Suspect]
     Indication: CONVULSION

REACTIONS (1)
  - Growth retardation [Unknown]
